FAERS Safety Report 4984207-0 (Version None)
Quarter: 2006Q2

REPORT INFORMATION
  Report Type: 
  Country: None (occurrence: None)
  Receive Date: 20060427
  Receipt Date: 20060425
  Transmission Date: 20061013
  Serious: Yes (Death)
  Sender: FDA-Public Use
  Company Number: US-JNJFOC-20060402683

PATIENT
  Sex: Male

DRUGS (7)
  1. LEVAQUIN [Suspect]
     Indication: SINUSITIS
     Route: 048
  2. BENICAR [Concomitant]
  3. RENEGEL [Concomitant]
  4. SODIUM BICARB [Concomitant]
  5. MINOXIDIL [Concomitant]
  6. TOPROL-XL [Concomitant]
  7. DEMADEX [Concomitant]

REACTIONS (1)
  - DEATH [None]
